FAERS Safety Report 7070588-3 (Version None)
Quarter: 2010Q4

REPORT INFORMATION
  Report Type: 
  Country: None (occurrence: None)
  Receive Date: 20101029
  Receipt Date: 20101019
  Transmission Date: 20110411
  Serious: Yes (Other)
  Sender: FDA-Public Use
  Company Number: US-PFIZER INC-2010132936

PATIENT
  Sex: Male
  Weight: 63.492 kg

DRUGS (9)
  1. VIAGRA [Suspect]
     Indication: PROSTATIC DISORDER
     Dosage: UNK
     Dates: start: 19900101
  2. ARICEPT [Suspect]
     Dosage: 10 MG, UNK
     Dates: start: 20000101
  3. NAMENDA [Suspect]
     Indication: DEMENTIA ALZHEIMER'S TYPE
     Dosage: 5 MG, 1X/DAY
     Dates: start: 20000101
  4. SEROQUEL [Concomitant]
     Indication: ABNORMAL BEHAVIOUR
     Dosage: UNK
  5. DEPAKOTE [Concomitant]
     Indication: ABNORMAL BEHAVIOUR
     Dosage: 125 MG, UNK
  6. POLYETHYLENE GLYCOL [Concomitant]
     Indication: SUPPLEMENTATION THERAPY
     Dosage: UNK
  7. ZYPREXA [Concomitant]
     Indication: ABNORMAL BEHAVIOUR
     Dosage: 10 MG, UNK
  8. MIRTAZAPINE [Concomitant]
     Dosage: 15 MG, UNK
  9. NAPROXEN [Concomitant]
     Dosage: 500 MG, UNK

REACTIONS (1)
  - TOOTH INFECTION [None]
